FAERS Safety Report 8363352-6 (Version None)
Quarter: 2012Q1

REPORT INFORMATION
  Report Type: 
  Country: None (occurrence: None)
  Receive Date: 20120323
  Receipt Date: 20110609
  Transmission Date: 20120608
  Serious: Yes (Death)
  Sender: FDA-Public Use
  Company Number: 163-21880-11052134

PATIENT
  Age: 88 Year
  Sex: Male
  Weight: 49.8957 kg

DRUGS (21)
  1. COREG [Concomitant]
  2. ARANESP [Concomitant]
  3. PANCREAZE [Concomitant]
  4. IMODIUM A-D [Concomitant]
  5. MARINOL [Concomitant]
  6. VITAMIN D [Concomitant]
  7. PRILOSEC [Concomitant]
  8. ZOFRAN [Concomitant]
  9. LANOXIN [Concomitant]
  10. LASIX [Concomitant]
  11. OSCAL (CALCIUM CARBONATE) [Concomitant]
  12. FOLIC ACID [Concomitant]
  13. SANDOSTATIN [Concomitant]
  14. NORCO [Concomitant]
  15. MEGACE [Concomitant]
  16. DIGOXIN [Concomitant]
  17. REVLIMID [Suspect]
     Indication: MYELODYSPLASTIC SYNDROME
     Dosage: 5-10 MG VARIED ON 21, OFF 7 DAYS WITH FREQUENT HOLIDAYS, PO
     Route: 048
     Dates: start: 20080501, end: 20101101
  18. IMDUR [Concomitant]
  19. CELEXA [Concomitant]
  20. ASCORBIC ACID [Concomitant]
  21. TOBRADEX [Concomitant]

REACTIONS (1)
  - CARDIAC FAILURE [None]
